FAERS Safety Report 9056784 (Version 1)
Quarter: 2013Q1

REPORT INFORMATION
  Report Type: Spontaneous
  Country: US (occurrence: US)
  Receive Date: 20130201
  Receipt Date: 20130201
  Transmission Date: 20140127
  Serious: Yes (Other)
  Sender: FDA-Public Use
  Company Number: US-SANOFI-AVENTIS-2013SA007752

PATIENT
  Age: 88 Year
  Sex: Female

DRUGS (4)
  1. PLAVIX [Suspect]
  2. ASPIRIN [Concomitant]
  3. CITALOPRAM HYDROBROMIDE [Concomitant]
  4. HYDROCODONE [Concomitant]

REACTIONS (3)
  - Upper limb fracture [Unknown]
  - Fall [Unknown]
  - Aggression [Unknown]
